FAERS Safety Report 24642482 (Version 2)
Quarter: 2024Q4

REPORT INFORMATION
  Report Type: Spontaneous
  Country: GB (occurrence: GB)
  Receive Date: 20241120
  Receipt Date: 20241122
  Transmission Date: 20250115
  Serious: Yes (Death, Hospitalization, Other)
  Sender: DAIICHI
  Company Number: GB-DSJP-DS-2024-108881-GB

PATIENT
  Age: 31 Year
  Sex: Female

DRUGS (2)
  1. ENHERTU [Suspect]
     Active Substance: FAM-TRASTUZUMAB DERUXTECAN-NXKI
     Indication: Product used for unknown indication
     Dosage: UNK
     Route: 065
  2. ENHERTU [Suspect]
     Active Substance: FAM-TRASTUZUMAB DERUXTECAN-NXKI
     Dosage: 440 MG
     Route: 065
     Dates: start: 20241025

REACTIONS (3)
  - Metastases to central nervous system [Fatal]
  - Seizure [Unknown]
  - Pneumonitis [Unknown]

NARRATIVE: CASE EVENT DATE: 20241101
